FAERS Safety Report 13590654 (Version 1)
Quarter: 2017Q2

REPORT INFORMATION
  Report Type: Spontaneous
  Country: US (occurrence: US)
  Receive Date: 20170529
  Receipt Date: 20170529
  Transmission Date: 20170830
  Serious: No
  Sender: FDA-Public Use
  Company Number: US-WEST-WARD PHARMACEUTICALS CORP.-US-H14001-16-02291

PATIENT
  Sex: Male

DRUGS (1)
  1. PREDNISONE. [Suspect]
     Active Substance: PREDNISONE
     Indication: GOUT
     Route: 065

REACTIONS (5)
  - Fluid retention [Unknown]
  - Swelling [Unknown]
  - Pain [Unknown]
  - Irritability [Unknown]
  - Gout [Unknown]
